FAERS Safety Report 18109929 (Version 4)
Quarter: 2020Q3

REPORT INFORMATION
  Report Type: Spontaneous
  Country: US (occurrence: US)
  Receive Date: 20200804
  Receipt Date: 20200924
  Transmission Date: 20201103
  Serious: No
  Sender: FDA-Public Use
  Company Number: US-UNITED THERAPEUTICS-UNT-2020-011372

PATIENT
  Age: 62 Year
  Sex: Female
  Weight: 85.71 kg

DRUGS (4)
  1. REMODULIN [Suspect]
     Active Substance: TREPROSTINIL
     Dosage: UNK, CONTINUING (0.022ML/HR/MIN)
     Route: 058
  2. REMODULIN [Suspect]
     Active Substance: TREPROSTINIL
     Dosage: 0.048 ?G/KG, CONTINUING
     Route: 058
  3. REMODULIN [Suspect]
     Active Substance: TREPROSTINIL
     Indication: PULMONARY ARTERIAL HYPERTENSION
     Dosage: UNK, CONTINUING
     Route: 058
     Dates: start: 20170303
  4. ADEMPAS [Suspect]
     Active Substance: RIOCIGUAT
     Indication: PRODUCT USED FOR UNKNOWN INDICATION
     Route: 065

REACTIONS (20)
  - Dyspnoea [Unknown]
  - Infusion site bruising [Unknown]
  - Diverticulitis [Unknown]
  - Memory impairment [Unknown]
  - Device connection issue [Unknown]
  - Infusion site pain [Unknown]
  - Rhinorrhoea [Unknown]
  - Nasal congestion [Unknown]
  - Poor quality sleep [Unknown]
  - Influenza like illness [Unknown]
  - Respiratory tract congestion [Unknown]
  - Feeling drunk [Unknown]
  - Infusion site haemorrhage [Unknown]
  - Decreased appetite [Unknown]
  - Headache [Unknown]
  - Dizziness [Unknown]
  - Infusion site nodule [Unknown]
  - Feeling abnormal [Unknown]
  - Nausea [Unknown]
  - Productive cough [Unknown]

NARRATIVE: CASE EVENT DATE: 20200729
